FAERS Safety Report 8536105 (Version 5)
Quarter: 2013Q4

REPORT INFORMATION
  Report Type: Report from Study
  Country: SK (occurrence: SK)
  Receive Date: 20120430
  Receipt Date: 20131223
  Transmission Date: 20140711
  Serious: Yes (Hospitalization)
  Sender: FDA-Public Use
  Company Number: SK-UCBSA-055966

PATIENT
  Age: 75 Year
  Sex: Female
  Weight: 74 kg

DRUGS (14)
  1. NEUPRO [Suspect]
     Indication: PARKINSON^S DISEASE
     Route: 062
     Dates: start: 20101208
  2. NEUPRO [Suspect]
     Indication: PARKINSON^S DISEASE
     Route: 062
     Dates: start: 20101201, end: 20101207
  3. NEUPRO [Suspect]
     Indication: PARKINSON^S DISEASE
     Route: 062
     Dates: start: 20101124, end: 20101130
  4. NEUPRO [Suspect]
     Indication: PARKINSON^S DISEASE
     Route: 062
     Dates: start: 20101116, end: 20101123
  5. L-DOPA [Concomitant]
     Indication: PARKINSON^S DISEASE
  6. AZILECT [Concomitant]
     Indication: PARKINSON^S DISEASE
     Dates: start: 20100831, end: 20100902
  7. AZILECT [Concomitant]
     Indication: PARKINSON^S DISEASE
  8. STALEVO [Concomitant]
     Indication: PARKINSON^S DISEASE
  9. STALEVO [Concomitant]
     Indication: PARKINSON^S DISEASE
  10. XANAX [Concomitant]
     Indication: DEPRESSION
  11. CITALOPRAM [Concomitant]
     Indication: DEPRESSION
  12. RIVOTRIL [Concomitant]
     Indication: ESSENTIAL TREMOR
  13. URUTAL FORTE [Concomitant]
     Indication: VERTIGO
  14. ALPRAZOLAM [Concomitant]
     Indication: DEPRESSION

REACTIONS (1)
  - Contusion [Recovering/Resolving]
